FAERS Safety Report 8367939-6 (Version None)
Quarter: 2012Q2

REPORT INFORMATION
  Report Type: 
  Country: None (occurrence: None)
  Receive Date: 20120517
  Receipt Date: 20120509
  Transmission Date: 20120825
  Serious: Yes (Hospitalization)
  Sender: FDA-Public Use
  Company Number: JP-ROCHE-801717

PATIENT
  Sex: Male
  Weight: 77 kg

DRUGS (11)
  1. PIOGLITAZONE HYDROCHLORIDE [Suspect]
     Indication: DIABETES MELLITUS
     Dosage: NOTE: BEGINNING OF DOSAGE DAY:TRIAL PRENITIATION
     Route: 048
  2. ZOLPIDEM [Concomitant]
     Indication: INSOMNIA
     Route: 048
  3. ALENDRONATE SODIUM [Concomitant]
     Indication: OSTEOPOROSIS PROPHYLAXIS
     Route: 048
  4. ROSUVASTATIN [Suspect]
     Route: 048
  5. ACTEMRA [Suspect]
     Dates: start: 20100907
  6. ROSUVASTATIN [Suspect]
     Indication: HYPERLIPIDAEMIA
     Dosage: NOTE: BEGINNING OF DOSAGE DAY:TRIAL PRENITIATION
     Route: 048
  7. LOXONIN [Concomitant]
     Indication: RHEUMATOID ARTHRITIS
     Dosage: DOSE FORM: TAPE
     Route: 061
  8. PREDNISOLONE [Suspect]
     Indication: RHEUMATOID ARTHRITIS
     Dosage: NOTE: BEGINNING OF DOSAGE DAY:TRIAL PRENITIATION
     Route: 048
  9. CELECOXIB [Suspect]
     Indication: RHEUMATOID ARTHRITIS
     Dosage: NOTE: BEGINNING OF DOSAGE DAY:TRIAL PRENITIATION
     Route: 048
  10. PLACEBO [Suspect]
     Indication: RHEUMATOID ARTHRITIS
     Route: 058
     Dates: start: 20100907
  11. ACTEMRA [Suspect]
     Indication: RHEUMATOID ARTHRITIS
     Route: 058
     Dates: start: 20110218, end: 20110819

REACTIONS (9)
  - DIABETES MELLITUS [None]
  - ASPARTATE AMINOTRANSFERASE INCREASED [None]
  - HEPATIC FUNCTION ABNORMAL [None]
  - ARTERIOSCLEROSIS [None]
  - ANGINA UNSTABLE [None]
  - ANGINA PECTORIS [None]
  - HYPERLIPIDAEMIA [None]
  - DYSPNOEA [None]
  - CORONARY ARTERY STENOSIS [None]
